FAERS Safety Report 5444535-1 (Version None)
Quarter: 2007Q3

REPORT INFORMATION
  Report Type: 
  Country: None (occurrence: None)
  Receive Date: 20070904
  Receipt Date: 20070904
  Transmission Date: 20080115
  Serious: Yes (Hospitalization)
  Sender: FDA-Public Use
  Company Number: None

PATIENT
  Age: 54 Year
  Sex: Female
  Weight: 77.1115 kg

DRUGS (2)
  1. HYDROMORPHONE HCL [Suspect]
     Indication: ABDOMINAL PAIN
     Dosage: 1 MG  X1  IV BOLUS
     Route: 040
     Dates: start: 20070829, end: 20070829
  2. HYDROMORPHONE HCL [Suspect]
     Indication: CONSTIPATION
     Dosage: 1 MG  X1  IV BOLUS
     Route: 040
     Dates: start: 20070829, end: 20070829

REACTIONS (2)
  - HYPERHIDROSIS [None]
  - NAUSEA [None]
